FAERS Safety Report 25858966 (Version 1)
Quarter: 2025Q3

REPORT INFORMATION
  Report Type: Spontaneous
  Country: KR (occurrence: KR)
  Receive Date: 20250929
  Receipt Date: 20250929
  Transmission Date: 20251021
  Serious: Yes (Other)
  Sender: MYLAN
  Company Number: KR-MYLANLABS-2025M1081703

PATIENT
  Sex: Male
  Weight: 92 kg

DRUGS (28)
  1. LYRICA [Suspect]
     Active Substance: PREGABALIN
     Indication: Chronic sinusitis
     Dosage: 1 DOSAGE FORM, BID
     Dates: start: 20220616, end: 20220702
  2. LYRICA [Suspect]
     Active Substance: PREGABALIN
     Dosage: 1 DOSAGE FORM, BID
     Route: 065
     Dates: start: 20220616, end: 20220702
  3. LYRICA [Suspect]
     Active Substance: PREGABALIN
     Dosage: 1 DOSAGE FORM, BID
     Route: 065
     Dates: start: 20220616, end: 20220702
  4. LYRICA [Suspect]
     Active Substance: PREGABALIN
     Dosage: 1 DOSAGE FORM, BID
     Dates: start: 20220616, end: 20220702
  5. CELECOXIB [Suspect]
     Active Substance: CELECOXIB
     Indication: Chronic sinusitis
     Dosage: 1 DOSAGE FORM, QD
     Dates: start: 20220616, end: 20220702
  6. CELECOXIB [Suspect]
     Active Substance: CELECOXIB
     Dosage: 1 DOSAGE FORM, QD
     Route: 065
     Dates: start: 20220616, end: 20220702
  7. CELECOXIB [Suspect]
     Active Substance: CELECOXIB
     Dosage: 1 DOSAGE FORM, QD
     Route: 065
     Dates: start: 20220616, end: 20220702
  8. CELECOXIB [Suspect]
     Active Substance: CELECOXIB
     Dosage: 1 DOSAGE FORM, QD
     Dates: start: 20220616, end: 20220702
  9. METHOTREXATE [Suspect]
     Active Substance: METHOTREXATE
     Indication: Chronic sinusitis
     Dosage: 1 DOSAGE FORM, QD
     Dates: start: 20220616, end: 20220702
  10. METHOTREXATE [Suspect]
     Active Substance: METHOTREXATE
     Dosage: 1 DOSAGE FORM, QD
     Route: 065
     Dates: start: 20220616, end: 20220702
  11. METHOTREXATE [Suspect]
     Active Substance: METHOTREXATE
     Dosage: 1 DOSAGE FORM, QD
     Route: 065
     Dates: start: 20220616, end: 20220702
  12. METHOTREXATE [Suspect]
     Active Substance: METHOTREXATE
     Dosage: 1 DOSAGE FORM, QD
     Dates: start: 20220616, end: 20220702
  13. SULFASALAZINE [Suspect]
     Active Substance: SULFASALAZINE
     Indication: Chronic sinusitis
     Dosage: 2 DOSAGE FORM, BID
     Dates: start: 20220616, end: 20220702
  14. SULFASALAZINE [Suspect]
     Active Substance: SULFASALAZINE
     Dosage: 2 DOSAGE FORM, BID
     Route: 065
     Dates: start: 20220616, end: 20220702
  15. SULFASALAZINE [Suspect]
     Active Substance: SULFASALAZINE
     Dosage: 2 DOSAGE FORM, BID
     Route: 065
     Dates: start: 20220616, end: 20220702
  16. SULFASALAZINE [Suspect]
     Active Substance: SULFASALAZINE
     Dosage: 2 DOSAGE FORM, BID
     Dates: start: 20220616, end: 20220702
  17. PREDNISOLONE [Concomitant]
     Active Substance: PREDNISOLONE
     Indication: Chronic sinusitis
     Dosage: 1 DOSAGE FORM, QD
     Dates: start: 20220616, end: 20220702
  18. PREDNISOLONE [Concomitant]
     Active Substance: PREDNISOLONE
     Dosage: 1 DOSAGE FORM, QD
     Route: 065
     Dates: start: 20220616, end: 20220702
  19. PREDNISOLONE [Concomitant]
     Active Substance: PREDNISOLONE
     Dosage: 1 DOSAGE FORM, QD
     Route: 065
     Dates: start: 20220616, end: 20220702
  20. PREDNISOLONE [Concomitant]
     Active Substance: PREDNISOLONE
     Dosage: 1 DOSAGE FORM, QD
     Dates: start: 20220616, end: 20220702
  21. FOLIC ACID [Concomitant]
     Active Substance: FOLIC ACID
     Indication: Chronic sinusitis
     Dosage: 1 DOSAGE FORM, QD
     Dates: start: 20220616, end: 20220702
  22. FOLIC ACID [Concomitant]
     Active Substance: FOLIC ACID
     Dosage: 1 DOSAGE FORM, QD
     Route: 065
     Dates: start: 20220616, end: 20220702
  23. FOLIC ACID [Concomitant]
     Active Substance: FOLIC ACID
     Dosage: 1 DOSAGE FORM, QD
     Route: 065
     Dates: start: 20220616, end: 20220702
  24. FOLIC ACID [Concomitant]
     Active Substance: FOLIC ACID
     Dosage: 1 DOSAGE FORM, QD
     Dates: start: 20220616, end: 20220702
  25. ESOMEPRAZOLE [Concomitant]
     Active Substance: ESOMEPRAZOLE
     Indication: Chronic sinusitis
     Dosage: 1 DOSAGE FORM, QD
     Dates: start: 20220616, end: 20220702
  26. ESOMEPRAZOLE [Concomitant]
     Active Substance: ESOMEPRAZOLE
     Dosage: 1 DOSAGE FORM, QD
     Route: 065
     Dates: start: 20220616, end: 20220702
  27. ESOMEPRAZOLE [Concomitant]
     Active Substance: ESOMEPRAZOLE
     Dosage: 1 DOSAGE FORM, QD
     Route: 065
     Dates: start: 20220616, end: 20220702
  28. ESOMEPRAZOLE [Concomitant]
     Active Substance: ESOMEPRAZOLE
     Dosage: 1 DOSAGE FORM, QD
     Dates: start: 20220616, end: 20220702

REACTIONS (4)
  - Stevens-Johnson syndrome [Recovering/Resolving]
  - Liver function test increased [Recovering/Resolving]
  - Jaundice [Recovering/Resolving]
  - Product use in unapproved indication [Unknown]

NARRATIVE: CASE EVENT DATE: 20220616
